FAERS Safety Report 26106092 (Version 1)
Quarter: 2025Q4

REPORT INFORMATION
  Report Type: Report from Study
  Country: US (occurrence: US)
  Receive Date: 20251201
  Receipt Date: 20251201
  Transmission Date: 20260119
  Serious: Yes (Other)
  Sender: JOHNSON AND JOHNSON
  Company Number: US-JNJFOC-20251168027

PATIENT
  Age: 59 Year

DRUGS (3)
  1. TECVAYLI [Suspect]
     Active Substance: TECLISTAMAB-CQYV
     Indication: Plasma cell myeloma
     Dosage: (TECVAYLI) INJECTION 10 MG/ML 3.3 MG, TECLISTAMAB -10 MG/ML SUBCUTANEOUS SOLUTION.
     Route: 058
     Dates: start: 20250607
  2. TALVEY [Suspect]
     Active Substance: TALQUETAMAB-TGVS
     Indication: Plasma cell myeloma
     Dosage: (TALVEY) INJECTION 2 MG/ML 0.54 MG, TALVEY- 2 MG/ML SUBCUTANEOUS SOLUTION
     Route: 058
     Dates: start: 20250610
  3. TALVEY [Suspect]
     Active Substance: TALQUETAMAB-TGVS
     Dosage: 0.06 MG/KG ? 53.4 KG (TREATMENT PLAN RECORDED WEIGHT AS OF 6-JUN-2025);= 3.204 MG ? 1 ML/2 MG;= 1.6
     Route: 058
     Dates: start: 20250613

REACTIONS (9)
  - Plasma cell myeloma refractory [Unknown]
  - Brain neoplasm [Unknown]
  - Blood loss anaemia [Unknown]
  - Hypokalaemia [Unknown]
  - Deafness [Unknown]
  - Anaemia of malignant disease [Unknown]
  - Malnutrition [Unknown]
  - Anxiety disorder [Unknown]
  - Cancer pain [Unknown]
